FAERS Safety Report 9494397 (Version 1)
Quarter: 2013Q3

REPORT INFORMATION
  Report Type: Report from Study
  Country: DE (occurrence: DE)
  Receive Date: 20130903
  Receipt Date: 20130903
  Transmission Date: 20140515
  Serious: Yes (Hospitalization, Other)
  Sender: FDA-Public Use
  Company Number: DE-ROCHE-1269470

PATIENT
  Age: 87 Year
  Sex: Female
  Weight: 78 kg

DRUGS (9)
  1. RANIBIZUMAB [Suspect]
     Indication: PRODUCT USED FOR UNKNOWN INDICATION
     Dosage: DOSE: 2.3 MG IN 073 ML. FORM IS SOLUTION AND INJECTION.
     Route: 050
     Dates: start: 20081103
  2. RANIBIZUMAB [Suspect]
     Route: 050
     Dates: start: 20130318
  3. METOPROLOL TARTRATE [Concomitant]
     Route: 065
     Dates: start: 1993
  4. L THYROXIN BETA [Concomitant]
     Route: 065
     Dates: start: 2003
  5. L THYROXIN BETA [Concomitant]
     Route: 065
     Dates: start: 20130820
  6. HYDROCHLOROTHIAZIDE [Concomitant]
     Route: 065
     Dates: start: 1993
  7. HYDROCHLOROTHIAZIDE [Concomitant]
     Route: 065
     Dates: start: 20130820
  8. ALLOPURINOL [Concomitant]
     Route: 065
     Dates: start: 1993
  9. ALLOPURINOL [Concomitant]
     Route: 065
     Dates: start: 20130820

REACTIONS (4)
  - Amyotrophic lateral sclerosis [Not Recovered/Not Resolved]
  - Cerebrovascular accident [Recovered/Resolved]
  - Cataract [Not Recovered/Not Resolved]
  - Macular scar [Not Recovered/Not Resolved]
